FAERS Safety Report 6107213-1 (Version None)
Quarter: 2009Q1

REPORT INFORMATION
  Report Type: 
  Country: None (occurrence: None)
  Receive Date: 20090309
  Receipt Date: 20090303
  Transmission Date: 20090719
  Serious: Yes (Life-Threatening, Hospitalization)
  Sender: FDA-Public Use
  Company Number: US-BAYER-200835738NA

PATIENT
  Age: 73 Year
  Sex: Male

DRUGS (3)
  1. ULTRAVIST (PHARMACY BULK) [Suspect]
     Indication: LUNG NEOPLASM MALIGNANT
     Dosage: TOTAL DAILY DOSE: 100 ML  UNIT DOSE: 500 ML
     Route: 042
     Dates: start: 20081009, end: 20081009
  2. ALBUTEROL [Concomitant]
  3. COMBIVENT [Concomitant]

REACTIONS (5)
  - BRONCHOSPASM [None]
  - CYANOSIS [None]
  - DYSPNOEA [None]
  - VOMITING [None]
  - WHEEZING [None]
